FAERS Safety Report 7139483-5 (Version None)
Quarter: 2010Q4

REPORT INFORMATION
  Report Type: 
  Country: None (occurrence: None)
  Receive Date: 20101206
  Receipt Date: 20101130
  Transmission Date: 20110411
  Serious: Yes (Death, Disabling, Other)
  Sender: FDA-Public Use
  Company Number: US-PFIZER INC-2010160790

PATIENT
  Sex: Female
  Weight: 78.005 kg

DRUGS (3)
  1. ALPRAZOLAM [Suspect]
     Indication: CEREBROVASCULAR ACCIDENT
     Dosage: 0.25 MG, UNK
     Route: 048
     Dates: start: 20090101
  2. PLAVIX [Concomitant]
     Indication: HYPERTENSION
     Dosage: UNK
     Route: 048
  3. LIPITOR [Concomitant]
     Indication: BLOOD CHOLESTEROL ABNORMAL
     Dosage: UNK
     Route: 048

REACTIONS (3)
  - ANEURYSM [None]
  - DEMENTIA [None]
  - PSYCHOTIC DISORDER [None]
